FAERS Safety Report 12899691 (Version 2)
Quarter: 2016Q4

REPORT INFORMATION
  Report Type: Spontaneous
  Country: US (occurrence: US)
  Receive Date: 20161101
  Receipt Date: 20161118
  Transmission Date: 20170207
  Serious: Yes (Other)
  Sender: FDA-Public Use
  Company Number: US-GLAXOSMITHKLINE-US2016GSK158897

PATIENT
  Age: 46 Year
  Sex: Female

DRUGS (3)
  1. TANZEUM [Suspect]
     Active Substance: ALBIGLUTIDE
     Dosage: 50 MG, WE
     Route: 042
     Dates: start: 201604
  2. TANZEUM [Suspect]
     Active Substance: ALBIGLUTIDE
     Dosage: UNK UNK, SINGLE
     Route: 061
     Dates: start: 20161024, end: 20161024
  3. TANZEUM [Suspect]
     Active Substance: ALBIGLUTIDE
     Indication: TYPE 2 DIABETES MELLITUS
     Dosage: 50 MG, WE
     Route: 042
     Dates: start: 201505, end: 201506

REACTIONS (8)
  - Thyroid mass [Unknown]
  - Vomiting [Recovered/Resolved]
  - Device use error [Unknown]
  - Biopsy thyroid gland [Unknown]
  - Gastric disorder [Recovered/Resolved]
  - Device leakage [Unknown]
  - Accidental exposure to product [Unknown]
  - Carotid artery thrombosis [Unknown]

NARRATIVE: CASE EVENT DATE: 2015
